FAERS Safety Report 9348088 (Version 1)
Quarter: 2013Q2

REPORT INFORMATION
  Report Type: Spontaneous
  Country: US (occurrence: US)
  Receive Date: 20130614
  Receipt Date: 20130614
  Transmission Date: 20140414
  Serious: No
  Sender: FDA-Public Use
  Company Number: US-009507513-1306USA005104

PATIENT
  Sex: 0

DRUGS (2)
  1. IMPLANON [Suspect]
     Dosage: UNK
     Route: 059
     Dates: start: 200811, end: 201111
  2. IMPLANON [Suspect]
     Dosage: UNK
     Route: 059
     Dates: start: 200811, end: 201111

REACTIONS (2)
  - Medical device complication [Unknown]
  - No adverse event [Unknown]
